FAERS Safety Report 5390080-1 (Version None)
Quarter: 2007Q3

REPORT INFORMATION
  Report Type: 
  Country: None (occurrence: None)
  Receive Date: 20070718
  Receipt Date: 20070711
  Transmission Date: 20080115
  Serious: Yes (Other)
  Sender: FDA-Public Use
  Company Number: A0663373A

PATIENT
  Age: 34 Year
  Sex: Female

DRUGS (3)
  1. LAMICTAL [Suspect]
     Indication: BIPOLAR DISORDER
     Dosage: 100MG PER DAY
     Route: 048
     Dates: start: 20070514, end: 20070625
  2. PAXIL [Concomitant]
  3. HYDROXYZINE [Concomitant]

REACTIONS (3)
  - FACIAL PALSY [None]
  - LYMPHADENOPATHY [None]
  - SKIN EXFOLIATION [None]
